FAERS Safety Report 15566331 (Version 1)
Quarter: 2018Q4

REPORT INFORMATION
  Report Type: Spontaneous
  Country: US (occurrence: US)
  Receive Date: 20181030
  Receipt Date: 20181030
  Transmission Date: 20190205
  Serious: No
  Sender: FDA-Public Use
  Company Number: None

PATIENT
  Age: 35 Year
  Sex: Female
  Weight: 61.65 kg

DRUGS (10)
  1. METFORMIN [Concomitant]
     Active Substance: METFORMIN HYDROCHLORIDE
  2. ZOCOR [Concomitant]
     Active Substance: SIMVASTATIN
  3. ALBUTEROL. [Concomitant]
     Active Substance: ALBUTEROL
  4. BENADRYL [Concomitant]
     Active Substance: DIPHENHYDRAMINE HYDROCHLORIDE
  5. REMERON [Suspect]
     Active Substance: MIRTAZAPINE
     Indication: DEPRESSION
     Dosage: ?          QUANTITY:1 TABLET(S);?
     Route: 048
  6. TRADJENTA [Concomitant]
     Active Substance: LINAGLIPTIN
  7. PERPHENAZINE. [Concomitant]
     Active Substance: PERPHENAZINE
  8. MULTIVITAMINS [Concomitant]
     Active Substance: VITAMINS
  9. SEROQUEL [Concomitant]
     Active Substance: QUETIAPINE FUMARATE
  10. ARTANE [Concomitant]
     Active Substance: TRIHEXYPHENIDYL HYDROCHLORIDE

REACTIONS (9)
  - Dry mouth [None]
  - Rash generalised [None]
  - Thinking abnormal [None]
  - Dysphagia [None]
  - Dyspnoea [None]
  - Dizziness [None]
  - Dysstasia [None]
  - Chest pain [None]
  - Migraine [None]

NARRATIVE: CASE EVENT DATE: 20181008
